FAERS Safety Report 6125163-1 (Version None)
Quarter: 2009Q1

REPORT INFORMATION
  Report Type: 
  Country: None (occurrence: None)
  Receive Date: 20090318
  Receipt Date: 20090307
  Transmission Date: 20090719
  Serious: Yes (Other)
  Sender: FDA-Public Use
  Company Number: CHPA2009US06663

PATIENT
  Age: 90 Year
  Sex: Female
  Weight: 40.4 kg

DRUGS (2)
  1. PERDIEM OVERNIGHT RELIEF PILLS (NCH) (SENNA GLYCOSIDES (CA SALTS OF PU [Suspect]
     Indication: CONSTIPATION
     Dosage: 2-3 PILLS, AT NIGHT, ORAL
     Route: 048
  2. SINEMET [Concomitant]

REACTIONS (1)
  - BLOOD IRON DECREASED [None]
